FAERS Safety Report 9279476 (Version 4)
Quarter: 2013Q2

REPORT INFORMATION
  Report Type: Spontaneous
  Country: US (occurrence: US)
  Receive Date: 20130508
  Receipt Date: 20130624
  Transmission Date: 20140414
  Serious: No
  Sender: FDA-Public Use
  Company Number: US-009507513-1305USA001778

PATIENT
  Age: 20 Year
  Sex: Female
  Weight: 136.5 kg

DRUGS (2)
  1. IMPLANON [Suspect]
     Indication: CONTRACEPTION
     Dosage: ONE ROD
     Route: 059
     Dates: start: 201006
  2. VITAMINS (UNSPECIFIED) [Concomitant]

REACTIONS (2)
  - Unintended pregnancy [Unknown]
  - Medical device complication [Unknown]
